FAERS Safety Report 6015983-6 (Version None)
Quarter: 2008Q4

REPORT INFORMATION
  Report Type: 
  Country: None (occurrence: None)
  Receive Date: 20081222
  Receipt Date: 20081217
  Transmission Date: 20090506
  Serious: Yes (Other)
  Sender: FDA-Public Use
  Company Number: CH-BRISTOL-MYERS SQUIBB COMPANY-14447171

PATIENT
  Age: 35 Year
  Sex: Female

DRUGS (4)
  1. TRITTICO [Suspect]
     Indication: DEPRESSION
     Dosage: FORMULATION - TABLET
     Route: 048
     Dates: start: 20080214
  2. EFFEXOR [Suspect]
     Indication: SLEEP DISORDER
     Dosage: FORMULATION-TABLET, DOSE-37.5MG FROM 16MAR08-10APR08(26 DAYS),112.5MG FROM 10APR08-ONG
     Route: 048
     Dates: start: 20080316
  3. XANAX [Suspect]
     Route: 048
  4. SERTRAGEN [Suspect]
     Dosage: FORMULATION-TABLET
     Dates: end: 20080423

REACTIONS (2)
  - ABORTION [None]
  - PREGNANCY [None]
